FAERS Safety Report 16795608 (Version 6)
Quarter: 2020Q1

REPORT INFORMATION
  Report Type: Spontaneous
  Country: US (occurrence: US)
  Receive Date: 20190911
  Receipt Date: 20200113
  Transmission Date: 20200409
  Serious: No
  Sender: FDA-Public Use
  Company Number: US-BIOGEN-2017BI00418614

PATIENT
  Age: 38 Year
  Sex: Female

DRUGS (5)
  1. TECFIDERA [Suspect]
     Active Substance: DIMETHYL FUMARATE
     Indication: MULTIPLE SCLEROSIS
     Dosage: MAINTENANCE DOSE
     Route: 048
     Dates: start: 20160902, end: 20170608
  2. TECFIDERA [Suspect]
     Active Substance: DIMETHYL FUMARATE
     Route: 065
     Dates: start: 20150624, end: 20190301
  3. TECFIDERA [Suspect]
     Active Substance: DIMETHYL FUMARATE
     Route: 048
     Dates: start: 20190926
  4. TECFIDERA [Suspect]
     Active Substance: DIMETHYL FUMARATE
     Route: 048
     Dates: start: 201910
  5. TECFIDERA [Suspect]
     Active Substance: DIMETHYL FUMARATE
     Route: 048
     Dates: start: 20170608

REACTIONS (30)
  - Product dose omission [Recovered/Resolved]
  - Frustration tolerance decreased [Not Recovered/Not Resolved]
  - Odynophagia [Not Recovered/Not Resolved]
  - Alopecia [Unknown]
  - Musculoskeletal disorder [Recovered/Resolved]
  - Hot flush [Recovered/Resolved with Sequelae]
  - Ear discomfort [Not Recovered/Not Resolved]
  - Herpes zoster [Recovered/Resolved]
  - Gastric disorder [Unknown]
  - Decreased appetite [Unknown]
  - Burning sensation [Recovered/Resolved]
  - Nasopharyngitis [Recovered/Resolved]
  - Middle ear effusion [Recovered/Resolved]
  - Facial pain [Not Recovered/Not Resolved]
  - Rash [Recovered/Resolved with Sequelae]
  - Illness anxiety disorder [Unknown]
  - Foreign body in ear [Not Recovered/Not Resolved]
  - Myoclonus [Unknown]
  - Sunburn [Unknown]
  - Hypoaesthesia [Unknown]
  - Underdose [Unknown]
  - Diarrhoea [Not Recovered/Not Resolved]
  - Dizziness [Unknown]
  - Tinnitus [Not Recovered/Not Resolved]
  - Infection susceptibility increased [Unknown]
  - Headache [Unknown]
  - Pruritus [Recovered/Resolved]
  - Immune system disorder [Unknown]
  - Flushing [Recovered/Resolved with Sequelae]
  - Intentional product misuse [Unknown]

NARRATIVE: CASE EVENT DATE: 20170606
